FAERS Safety Report 17100217 (Version 1)
Quarter: 2019Q4

REPORT INFORMATION
  Report Type: Spontaneous
  Country: CN (occurrence: CN)
  Receive Date: 20191202
  Receipt Date: 20191202
  Transmission Date: 20200122
  Serious: Yes (Hospitalization)
  Sender: FDA-Public Use
  Company Number: CN-CELGENEUS-CHN-20190203076

PATIENT
  Age: 79 Year
  Sex: Male
  Weight: 59.4 kg

DRUGS (18)
  1. ADEMETIONINE [Concomitant]
     Active Substance: ADEMETIONINE
     Indication: PROPHYLAXIS
     Dosage: 3 GRAM
     Route: 048
     Dates: start: 20181224, end: 20181227
  2. ALBUMIN HUMAN [Concomitant]
     Active Substance: ALBUMIN HUMAN
     Dosage: 10 GRAM
     Route: 041
     Dates: start: 20190128, end: 20190201
  3. ETAMSYLATE [Concomitant]
     Active Substance: ETHAMSYLATE
     Indication: HAEMORRHAGE PROPHYLAXIS
     Route: 041
     Dates: start: 20190128, end: 20190128
  4. ADEMETIONINE [Concomitant]
     Active Substance: ADEMETIONINE
     Indication: BLOOD BILIRUBIN INCREASED
     Dosage: 1500 MILLIGRAM
     Route: 041
     Dates: start: 20190106, end: 20190111
  5. AZACITIDINE. [Suspect]
     Active Substance: AZACITIDINE
     Indication: ACUTE MYELOID LEUKAEMIA
     Route: 058
     Dates: start: 20181209, end: 20181215
  6. ALBUMIN HUMAN [Concomitant]
     Active Substance: ALBUMIN HUMAN
     Indication: HYPOALBUMINAEMIA
     Dosage: 10 GRAM
     Route: 041
     Dates: start: 20190107, end: 20190120
  7. ADEMETIONINE [Concomitant]
     Active Substance: ADEMETIONINE
     Indication: HEPATIC LESION
     Dosage: 1500 MILLIGRAM
     Route: 041
     Dates: start: 20190102, end: 20190105
  8. ADEMETIONINE [Concomitant]
     Active Substance: ADEMETIONINE
     Route: 041
     Dates: start: 20190112, end: 20190201
  9. URSODEORCHOLIC ACID [Concomitant]
     Indication: HEPATIC LESION
     Dosage: .75 GRAM
     Route: 048
     Dates: start: 20190104, end: 20190114
  10. URSODEORCHOLIC ACID [Concomitant]
     Dosage: .25 GRAM
     Route: 048
     Dates: start: 20190102, end: 20190103
  11. URSODEORCHOLIC ACID [Concomitant]
     Dosage: .75 GRAM
     Route: 048
     Dates: start: 20190113, end: 20190202
  12. ALBUMIN HUMAN [Concomitant]
     Active Substance: ALBUMIN HUMAN
     Indication: HYPOALBUMINAEMIA
     Dosage: 10 GRAM
     Route: 041
     Dates: start: 20181209, end: 20181224
  13. URSODEORCHOLIC ACID [Concomitant]
     Indication: HEPATOCELLULAR INJURY
     Dosage: .75 GRAM
     Route: 048
     Dates: start: 20181212, end: 20181218
  14. GRANULOCYTE COLONY STIMULATING FACTOR [Concomitant]
     Active Substance: GRANULOCYTE COLONY-STIMULATING FACTOR NOS
     Indication: LEUKOPENIA
     Dosage: 480 MICROGRAM
     Route: 058
     Dates: start: 20190121, end: 20190202
  15. URSODEORCHOLIC ACID [Concomitant]
     Dosage: .5 GRAM
     Route: 048
     Dates: start: 20181211, end: 20181211
  16. GRANULOCYTE COLONY STIMULATING FACTOR [Concomitant]
     Active Substance: GRANULOCYTE COLONY-STIMULATING FACTOR NOS
     Indication: NEUTROPENIA
     Route: 058
     Dates: start: 20181228, end: 20181228
  17. GRANULOCYTE COLONY STIMULATING FACTOR [Concomitant]
     Active Substance: GRANULOCYTE COLONY-STIMULATING FACTOR NOS
     Indication: PROPHYLAXIS
  18. VENETOCLAX. [Concomitant]
     Active Substance: VENETOCLAX
     Indication: ACUTE MYELOID LEUKAEMIA
     Route: 065

REACTIONS (1)
  - Gingivitis [Not Recovered/Not Resolved]

NARRATIVE: CASE EVENT DATE: 20190125
